FAERS Safety Report 14958874 (Version 2)
Quarter: 2018Q3

REPORT INFORMATION
  Report Type: Spontaneous
  Country: DE (occurrence: DE)
  Receive Date: 20180531
  Receipt Date: 20180824
  Transmission Date: 20181010
  Serious: Yes (Hospitalization, Disabling)
  Sender: FDA-Public Use
  Company Number: PHHY2018DE008014

PATIENT
  Sex: Male
  Weight: .49 kg

DRUGS (2)
  1. COSENTYX [Suspect]
     Active Substance: SECUKINUMAB
     Dosage: MATERNAL DOSE: 300 MG, UNK
     Route: 064
  2. COSENTYX [Suspect]
     Active Substance: SECUKINUMAB
     Indication: FOETAL EXPOSURE DURING PREGNANCY
     Dosage: MATERNAL DOSE: 300 MG, ONCE A MONTH
     Route: 064

REACTIONS (17)
  - Foetal exposure during pregnancy [Unknown]
  - Cholestasis [Unknown]
  - Pulmonary dysmaturity syndrome [Unknown]
  - Pulmonary haemorrhage [Unknown]
  - Bradycardia [Unknown]
  - Small for dates baby [Unknown]
  - Foetal growth restriction [Unknown]
  - Immunodeficiency [Unknown]
  - Intraventricular haemorrhage neonatal [Unknown]
  - Premature baby [Unknown]
  - Apnoea [Unknown]
  - Respiratory disorder [Unknown]
  - Necrotising colitis [Unknown]
  - Condition aggravated [Unknown]
  - Neonatal respiratory distress syndrome [Unknown]
  - Low birth weight baby [Unknown]
  - Sepsis [Unknown]

NARRATIVE: CASE EVENT DATE: 2017
